FAERS Safety Report 10194002 (Version 1)
Quarter: 2014Q2

REPORT INFORMATION
  Report Type: Spontaneous
  Country: US (occurrence: US)
  Receive Date: 20140524
  Receipt Date: 20140524
  Transmission Date: 20141212
  Serious: No
  Sender: FDA-Public Use
  Company Number: US-SANOFI-AVENTIS-2013SA050989

PATIENT
  Sex: Male

DRUGS (4)
  1. LANTUS SOLOSTAR [Suspect]
     Dosage: DOSE:10 UNIT(S)
     Route: 058
  2. LANTUS SOLOSTAR [Suspect]
     Dosage: DOSE:15 UNIT(S)
  3. LANTUS SOLOSTAR [Suspect]
     Dosage: DOSE:30 UNIT(S)
  4. SOLOSTAR [Suspect]

REACTIONS (3)
  - Malaise [Unknown]
  - Blood glucose increased [Unknown]
  - Drug ineffective [Unknown]
